FAERS Safety Report 23178540 (Version 1)
Quarter: 2023Q4

REPORT INFORMATION
  Report Type: Spontaneous
  Country: CN (occurrence: CN)
  Receive Date: 20231113
  Receipt Date: 20231113
  Transmission Date: 20240110
  Serious: Yes (Death)
  Sender: FDA-Public Use
  Company Number: CN-JNJFOC-20231133972

PATIENT

DRUGS (1)
  1. CHILDRENS MOTRIN [Suspect]
     Active Substance: IBUPROFEN
     Indication: Patent ductus arteriosus
     Route: 065

REACTIONS (10)
  - Off label use [Fatal]
  - Occult blood positive [Fatal]
  - Cystatin C increased [Fatal]
  - Urine output decreased [Fatal]
  - Necrotising colitis [Fatal]
  - Intraventricular haemorrhage [Fatal]
  - Pulmonary haemorrhage [Fatal]
  - Bronchopulmonary dysplasia [Fatal]
  - Retinopathy of prematurity [Fatal]
  - Upper gastrointestinal haemorrhage [Fatal]
